FAERS Safety Report 7886396-7 (Version None)
Quarter: 2011Q4

REPORT INFORMATION
  Report Type: 
  Country: None (occurrence: None)
  Receive Date: 20111102
  Receipt Date: 20110705
  Transmission Date: 20120403
  Serious: Yes (Hospitalization)
  Sender: FDA-Public Use
  Company Number: US-AMGEN-USASP2011034049

PATIENT
  Age: 42 Year
  Sex: Female

DRUGS (1)
  1. ENBREL [Suspect]
     Indication: PSORIASIS
     Dosage: 50 MG, QWK
     Dates: start: 20110501, end: 20110624

REACTIONS (7)
  - APPENDICITIS [None]
  - ABDOMINAL PAIN [None]
  - HEADACHE [None]
  - PYREXIA [None]
  - ERYTHEMA [None]
  - DRUG INEFFECTIVE [None]
  - NAUSEA [None]
